FAERS Safety Report 8053371-1 (Version None)
Quarter: 2012Q1

REPORT INFORMATION
  Report Type: 
  Country: None (occurrence: None)
  Receive Date: 20120118
  Receipt Date: 20120117
  Transmission Date: 20120608
  Serious: Yes (Hospitalization)
  Sender: FDA-Public Use
  Company Number: IT-BAYER-2012-005364

PATIENT

DRUGS (5)
  1. LACTULOSE [Concomitant]
     Dosage: DAILY DOSE 2 DF
     Route: 048
     Dates: start: 20091215
  2. VITAMIN K TAB [Concomitant]
     Dosage: 2 DF, OW
     Route: 030
     Dates: start: 20081215
  3. NEXAVAR [Suspect]
     Indication: HEPATIC NEOPLASM MALIGNANT
     Dosage: DAILY DOSE 800 MG
     Route: 048
     Dates: start: 20090115, end: 20090120
  4. POTASSIUM CANRENOATE [Concomitant]
     Dosage: DAILY DOSE 200 MG
     Route: 048
     Dates: start: 20081215
  5. PROPRANOLOL [Concomitant]
     Dosage: DAILY DOSE 20 MG
     Route: 048
     Dates: start: 20081215

REACTIONS (2)
  - HEPATIC ENCEPHALOPATHY [None]
  - DIARRHOEA [None]
